FAERS Safety Report 20858403 (Version 1)
Quarter: 2022Q2

REPORT INFORMATION
  Report Type: Spontaneous
  Country: IT (occurrence: IT)
  Receive Date: 20220521
  Receipt Date: 20220521
  Transmission Date: 20220721
  Serious: Yes (Other)
  Sender: FDA-Public Use
  Company Number: IT-AMGEN-ITASP2022082838

PATIENT

DRUGS (5)
  1. ADALIMUMAB [Suspect]
     Active Substance: ADALIMUMAB
     Indication: Psoriasis
     Route: 065
  2. ETANERCEPT [Suspect]
     Active Substance: ETANERCEPT
     Indication: Psoriasis
     Route: 065
  3. INFLIXIMAB [Concomitant]
     Active Substance: INFLIXIMAB
  4. CERTOLIZUMAB [Concomitant]
     Active Substance: CERTOLIZUMAB
  5. GOLIMUMAB [Concomitant]
     Active Substance: GOLIMUMAB

REACTIONS (2)
  - Bladder cancer [Unknown]
  - Treatment failure [Unknown]
